FAERS Safety Report 15190335 (Version 2)
Quarter: 2018Q3

REPORT INFORMATION
  Report Type: Spontaneous
  Country: US (occurrence: US)
  Receive Date: 20180724
  Receipt Date: 20180831
  Transmission Date: 20181010
  Serious: No
  Sender: FDA-Public Use
  Company Number: US-ASTRAZENECA-2017SF32875

PATIENT
  Sex: Male
  Weight: 93 kg

DRUGS (1)
  1. TUDORZA PRESSAIR [Suspect]
     Active Substance: ACLIDINIUM BROMIDE
     Route: 055
     Dates: start: 2015

REACTIONS (6)
  - Body height decreased [Unknown]
  - Cough [Unknown]
  - Therapy cessation [Unknown]
  - Device failure [Unknown]
  - Pulmonary function test normal [Unknown]
  - Underdose [Unknown]
